FAERS Safety Report 5864526-6 (Version None)
Quarter: 2008Q3

REPORT INFORMATION
  Report Type: 
  Country: None (occurrence: None)
  Receive Date: 20080829
  Receipt Date: 20080630
  Transmission Date: 20090109
  Serious: No
  Sender: FDA-Public Use
  Company Number: US-ABBOTT-08P-163-0460077-00

PATIENT
  Sex: Male

DRUGS (2)
  1. SIMCOR [Suspect]
     Indication: BLOOD CHOLESTEROL
     Route: 048
     Dates: start: 20080625, end: 20080630
  2. FEXOFENADINE [Concomitant]
     Indication: HYPERSENSITIVITY
     Route: 048

REACTIONS (9)
  - BURNING SENSATION [None]
  - DYSPNOEA [None]
  - EYE SWELLING [None]
  - FLUSHING [None]
  - HOT FLUSH [None]
  - HYPOAESTHESIA [None]
  - PARAESTHESIA [None]
  - SLEEP DISORDER [None]
  - SWELLING FACE [None]
